FAERS Safety Report 13510676 (Version 1)
Quarter: 2017Q2

REPORT INFORMATION
  Report Type: Report from Study
  Country: US (occurrence: US)
  Receive Date: 20170503
  Receipt Date: 20170503
  Transmission Date: 20170830
  Serious: Yes (Death, Hospitalization)
  Sender: FDA-Public Use
  Company Number: US-ACTELION-A-US2015-112296

PATIENT
  Age: 68 Year
  Sex: Female
  Weight: 76.64 kg

DRUGS (6)
  1. VELETRI [Suspect]
     Active Substance: EPOPROSTENOL
     Dosage: 12 NG/KG, PER MINUTE
     Route: 042
     Dates: start: 20140930
  2. VELETRI [Suspect]
     Active Substance: EPOPROSTENOL
     Dosage: 14 NG/KG, PER MIN
     Route: 042
     Dates: start: 20140930
  3. REVATIO [Concomitant]
     Active Substance: SILDENAFIL CITRATE
  4. RIOCIGUAT [Concomitant]
     Active Substance: RIOCIGUAT
  5. VELETRI [Suspect]
     Active Substance: EPOPROSTENOL
     Indication: PULMONARY HYPERTENSION
     Dosage: 8.5 NG/KG, PER MIN
     Route: 042
     Dates: start: 20141002, end: 20170425
  6. TRACLEER [Concomitant]
     Active Substance: BOSENTAN
     Indication: PULMONARY HYPERTENSION
     Dosage: UNK
     Route: 048
     Dates: start: 20141002

REACTIONS (13)
  - Cardiac failure congestive [Fatal]
  - Oedema [Unknown]
  - Respiratory failure [Unknown]
  - Syncope [Unknown]
  - Nausea [Unknown]
  - Dizziness [Unknown]
  - Mental impairment [Unknown]
  - Weight increased [Unknown]
  - Malaise [Unknown]
  - Fluid retention [Unknown]
  - Musculoskeletal pain [Unknown]
  - Dyspnoea [Unknown]
  - Asthenia [Unknown]
